FAERS Safety Report 10154082 (Version 1)
Quarter: 2014Q2

REPORT INFORMATION
  Report Type: Spontaneous
  Country: US (occurrence: None)
  Receive Date: 20140502
  Receipt Date: 20140502
  Transmission Date: 20141212
  Serious: Yes (Hospitalization)
  Sender: FDA-Public Use
  Company Number: UTC-047643

PATIENT
  Age: 43 Year
  Sex: Female
  Weight: 103.4 kg

DRUGS (4)
  1. REMODULIN (10 MILLIGRAM/MILLILITERS, INJECTION FOR INFUSION) (TREPROSTINIL SODIUM) [Suspect]
     Indication: PULMONARY ARTERIAL HYPERTENSION
     Dosage: (0.038 UG/KG, 1 IN 1 MIN)
     Route: 058
     Dates: start: 20130109
  2. WARFARIN (WARFARIN) [Concomitant]
  3. LETAIRIS (AMBRISENTAN) [Concomitant]
  4. REVATIO (SILDENAFIL CITRATE) [Concomitant]
     Dosage: 54.72 UG/KG (0.038 UG/KG, 1 IN 1 MIN) SUBCUTANEOUS

REACTIONS (2)
  - Palpitations [None]
  - Device alarm issue [None]
